FAERS Safety Report 10572505 (Version 1)
Quarter: 2014Q4

REPORT INFORMATION
  Report Type: Spontaneous
  Country: US (occurrence: US)
  Receive Date: 20141110
  Receipt Date: 20141110
  Transmission Date: 20150529
  Serious: Yes (Hospitalization)
  Sender: FDA-Public Use
  Company Number: US-BEH-2014046057

PATIENT
  Sex: Female
  Weight: 44 kg

DRUGS (20)
  1. PRIVIGEN [Suspect]
     Active Substance: HUMAN IMMUNOGLOBULIN G
     Dosage: 5 GM VIAL; 35 GM EVERY 2 WEEKS
     Route: 042
  2. PRIVIGEN [Suspect]
     Active Substance: HUMAN IMMUNOGLOBULIN G
     Dosage: 20 GM VIAL;35 GM EVERY 2 WEEKS
     Route: 042
  3. PREDNISONE. [Concomitant]
     Active Substance: PREDNISONE
  4. TAMIFLU [Concomitant]
     Active Substance: OSELTAMIVIR PHOSPHATE
  5. HEPARIN [Concomitant]
     Active Substance: HEPARIN SODIUM
  6. METHOTREXATE [Concomitant]
     Active Substance: METHOTREXATE
  7. REMICADE [Concomitant]
     Active Substance: INFLIXIMAB
  8. FOLIC ACID. [Concomitant]
     Active Substance: FOLIC ACID
  9. ACETAMINOPHEN. [Concomitant]
     Active Substance: ACETAMINOPHEN
  10. DEXTROSE. [Concomitant]
     Active Substance: DEXTROSE
  11. SODIUM CHLORIDE. [Concomitant]
     Active Substance: SODIUM CHLORIDE
  12. LMX [Concomitant]
     Active Substance: LIDOCAINE
  13. VALIUM [Concomitant]
     Active Substance: DIAZEPAM
  14. PROTOPIC [Concomitant]
     Active Substance: TACROLIMUS
  15. PLAQUENIL [Concomitant]
     Active Substance: HYDROXYCHLOROQUINE SULFATE
  16. PREVACID [Concomitant]
     Active Substance: LANSOPRAZOLE
  17. PRIVIGEN [Suspect]
     Active Substance: HUMAN IMMUNOGLOBULIN G
     Indication: DERMATOMYOSITIS
     Dosage: 10 GM VIAL; 35 GM EVERY 2 WEEKS
     Route: 042
  18. EPIPEN [Concomitant]
     Active Substance: EPINEPHRINE
  19. SOLU-MEDROL [Concomitant]
     Active Substance: METHYLPREDNISOLONE SODIUM SUCCINATE
  20. DIPHENHYDRAMINE [Concomitant]
     Active Substance: DIPHENHYDRAMINE

REACTIONS (1)
  - Hospitalisation [Recovered/Resolved]
